FAERS Safety Report 9055225 (Version 1)
Quarter: 2013Q1

REPORT INFORMATION
  Report Type: Spontaneous
  Country: US (occurrence: US)
  Receive Date: 20130206
  Receipt Date: 20130206
  Transmission Date: 20140127
  Serious: No
  Sender: FDA-Public Use
  Company Number: US-TEVA-384147USA

PATIENT
  Sex: Female

DRUGS (1)
  1. NUVIGIL [Suspect]
     Indication: NARCOLEPSY
     Dates: end: 2012

REACTIONS (4)
  - Drug ineffective [Unknown]
  - Somnolence [Unknown]
  - Hyperventilation [Unknown]
  - Tremor [Unknown]
